FAERS Safety Report 25805684 (Version 2)
Quarter: 2025Q3

REPORT INFORMATION
  Report Type: Spontaneous
  Country: CN (occurrence: CN)
  Receive Date: 20250916
  Receipt Date: 20250919
  Transmission Date: 20251021
  Serious: Yes (Other)
  Sender: CHIESI
  Company Number: CN-CHIESI-2025CHF06397

PATIENT
  Age: 0 Year
  Sex: Male
  Weight: 1.9 kg

DRUGS (1)
  1. CUROSURF [Suspect]
     Active Substance: PORACTANT ALFA
     Indication: Neonatal respiratory distress syndrome
     Dosage: 360 MILLIGRAM, QD
     Route: 007
     Dates: start: 20250831, end: 20250831

REACTIONS (1)
  - Cyanosis neonatal [Recovering/Resolving]

NARRATIVE: CASE EVENT DATE: 20250831
